FAERS Safety Report 26057885 (Version 1)
Quarter: 2025Q4

REPORT INFORMATION
  Report Type: Spontaneous
  Country: US (occurrence: US)
  Receive Date: 20251118
  Receipt Date: 20251118
  Transmission Date: 20260117
  Serious: No
  Sender: TAKEDA
  Company Number: US-TAKEDA-2025TUS102483

PATIENT
  Age: 28 Year
  Sex: Female

DRUGS (1)
  1. ENTYVIO [Suspect]
     Active Substance: VEDOLIZUMAB
     Indication: Colitis ulcerative
     Dosage: UNK

REACTIONS (2)
  - Abdominal distension [Not Recovered/Not Resolved]
  - Infrequent bowel movements [Not Recovered/Not Resolved]

NARRATIVE: CASE EVENT DATE: 20251104
